FAERS Safety Report 25570397 (Version 1)
Quarter: 2025Q3

REPORT INFORMATION
  Report Type: Spontaneous
  Country: CA (occurrence: CA)
  Receive Date: 20250717
  Receipt Date: 20250717
  Transmission Date: 20251020
  Serious: Yes (Other)
  Sender: DR REDDYS
  Company Number: None

PATIENT
  Age: 41 Year
  Sex: Female

DRUGS (6)
  1. ZOLEDRONIC ACID [Suspect]
     Active Substance: ZOLEDRONIC ACID
     Indication: Langerhans^ cell histiocytosis
  2. CYTARABINE [Suspect]
     Active Substance: CYTARABINE
     Indication: Langerhans^ cell histiocytosis
     Route: 037
  3. HYDROXYUREA [Suspect]
     Active Substance: HYDROXYUREA
     Indication: Langerhans^ cell histiocytosis
  4. INDOMETHACIN [Suspect]
     Active Substance: INDOMETHACIN
     Indication: Langerhans^ cell histiocytosis
  5. VEMURAFENIB [Suspect]
     Active Substance: VEMURAFENIB
     Indication: Langerhans^ cell histiocytosis
     Route: 048
  6. VEMURAFENIB [Suspect]
     Active Substance: VEMURAFENIB
     Route: 048

REACTIONS (4)
  - Langerhans^ cell histiocytosis [Unknown]
  - Nausea [Unknown]
  - Vomiting [Unknown]
  - Product use in unapproved indication [Unknown]
